FAERS Safety Report 7902117-3 (Version None)
Quarter: 2011Q4

REPORT INFORMATION
  Report Type: 
  Country: None (occurrence: None)
  Receive Date: 20111108
  Receipt Date: 20111031
  Transmission Date: 20120403
  Serious: No
  Sender: FDA-Public Use
  Company Number: US-BAYER-2011-106117

PATIENT
  Age: 26 Year
  Sex: Female

DRUGS (2)
  1. CIPROFLOXACIN [Suspect]
     Indication: URINARY TRACT INFECTION
     Dosage: 250 MG, BID
     Dates: start: 20110901
  2. IBUPROFEN (ADVIL) [Concomitant]
     Indication: INFLAMMATION
     Dosage: UNK
     Dates: start: 20110901

REACTIONS (2)
  - JOINT CREPITATION [None]
  - PAIN [None]
